FAERS Safety Report 8599003-5 (Version None)
Quarter: 2012Q3

REPORT INFORMATION
  Report Type: 
  Country: None (occurrence: None)
  Receive Date: 20120816
  Receipt Date: 20120813
  Transmission Date: 20120928
  Serious: Yes (Death)
  Sender: FDA-Public Use
  Company Number: ZA-ROCHE-1101604

PATIENT
  Sex: Male

DRUGS (4)
  1. VALCYTE [Concomitant]
  2. PREDNISONE TAB [Concomitant]
  3. PROGRAF [Concomitant]
  4. CELLCEPT [Suspect]
     Indication: PRODUCT USED FOR UNKNOWN INDICATION

REACTIONS (1)
  - CARDIAC DISORDER [None]
